FAERS Safety Report 10010732 (Version 2)
Quarter: 2014Q2

REPORT INFORMATION
  Report Type: Spontaneous
  Country: US (occurrence: US)
  Receive Date: 20140314
  Receipt Date: 20140404
  Transmission Date: 20141212
  Serious: Yes (Life-Threatening, Hospitalization)
  Sender: FDA-Public Use
  Company Number: US-JNJFOC-20140306531

PATIENT
  Age: 59 Year
  Sex: Male
  Weight: 103 kg

DRUGS (11)
  1. XARELTO [Suspect]
     Indication: CEREBROVASCULAR ACCIDENT PROPHYLAXIS
     Route: 048
     Dates: end: 20130624
  2. XARELTO [Suspect]
     Indication: CEREBROVASCULAR ACCIDENT PROPHYLAXIS
     Route: 048
     Dates: start: 20121205
  3. XARELTO [Suspect]
     Indication: ATRIAL FIBRILLATION
     Route: 048
     Dates: end: 20130624
  4. XARELTO [Suspect]
     Indication: ATRIAL FIBRILLATION
     Route: 048
     Dates: start: 20121205
  5. LAMISIL [Concomitant]
     Route: 048
  6. TENORMIN [Concomitant]
     Dosage: BED TIME
     Route: 048
  7. PRILOSEC [Concomitant]
     Route: 048
  8. ENALAPRIL [Concomitant]
     Route: 048
  9. EPIPEN [Concomitant]
     Dosage: 0.3 MG/0.3 ML (IM) PO
     Route: 065
  10. CHANTIX [Concomitant]
     Route: 048
  11. VITAMIN D [Concomitant]
     Dosage: 2000 UINITS
     Route: 065

REACTIONS (4)
  - Diarrhoea haemorrhagic [Recovered/Resolved]
  - Mesenteric artery thrombosis [Recovered/Resolved]
  - Cardiac ablation [Unknown]
  - Gastrointestinal haemorrhage [Recovered/Resolved]
